FAERS Safety Report 4373982-4 (Version None)
Quarter: 2004Q2

REPORT INFORMATION
  Report Type: 
  Country: None (occurrence: None)
  Receive Date: 20040603
  Receipt Date: 20040518
  Transmission Date: 20050107
  Serious: Yes (Death)
  Sender: FDA-Public Use
  Company Number: EWC040539355

PATIENT
  Age: 55 Year
  Sex: Female

DRUGS (5)
  1. ZYPREXA [Suspect]
     Indication: MANIA
     Dosage: 30 MG DAY
     Dates: start: 20040501
  2. LORAZEPAM [Concomitant]
  3. CHLORPROMAZINE [Concomitant]
  4. TALOFEN (PROMAZINE HYDROCHLORIDE) [Concomitant]
  5. FARGANESSE (PROMETHAZINE HYDROCHLORIDE) [Concomitant]

REACTIONS (1)
  - DEATH [None]
